FAERS Safety Report 5202530-1 (Version None)
Quarter: 2006Q4

REPORT INFORMATION
  Report Type: 
  Country: None (occurrence: None)
  Receive Date: 20061018
  Receipt Date: 20060724
  Transmission Date: 20070319
  Serious: Yes (Hospitalization)
  Sender: FDA-Public Use
  Company Number: 2006RL000269

PATIENT
  Age: 45 Year
  Sex: Female
  Weight: 68.0396 kg

DRUGS (2)
  1. RYTHMOL [Suspect]
     Indication: VENTRICULAR EXTRASYSTOLES
     Dosage: 225, MG, QD; PO
     Route: 048
     Dates: start: 20060618, end: 20060101
  2. EFFEXOR [Concomitant]

REACTIONS (2)
  - CHEST DISCOMFORT [None]
  - DRUG INEFFECTIVE [None]
